FAERS Safety Report 9989919 (Version 1)
Quarter: 2014Q1

REPORT INFORMATION
  Report Type: Report from Study
  Country: US (occurrence: US)
  Receive Date: 20140310
  Receipt Date: 20140310
  Transmission Date: 20141002
  Serious: No
  Sender: FDA-Public Use
  Company Number: US-ABBVIE-13P-163-1136247-00

PATIENT
  Age: 21 Year
  Sex: Male

DRUGS (7)
  1. HUMIRA [Suspect]
     Indication: COLITIS ULCERATIVE
     Dates: start: 20130519, end: 201307
  2. HUMIRA [Suspect]
     Indication: DRUG EFFECT INCOMPLETE
     Dosage: WEEKLY
     Dates: start: 20130730
  3. ASACOL [Concomitant]
     Indication: COLITIS ULCERATIVE
     Dosage: 6 A DAY
  4. MULTIVITAMIN [Concomitant]
     Indication: PRODUCT USED FOR UNKNOWN INDICATION
     Dosage: 1 DAILY
  5. BIOTIN [Concomitant]
     Indication: NUTRITIONAL SUPPLEMENTATION
     Dosage: 1 DAY
  6. CALCIUM [Concomitant]
     Indication: PRODUCT USED FOR UNKNOWN INDICATION
     Dosage: 1000 MG DAILY
  7. PROPECIA [Concomitant]
     Indication: NUTRITIONAL SUPPLEMENTATION
     Dosage: 1 A DAY

REACTIONS (2)
  - Drug effect incomplete [Not Recovered/Not Resolved]
  - Injection site pain [Not Recovered/Not Resolved]
